FAERS Safety Report 5131481-6 (Version None)
Quarter: 2006Q4

REPORT INFORMATION
  Report Type: 
  Country: None (occurrence: None)
  Receive Date: 20061020
  Receipt Date: 20060131
  Transmission Date: 20070319
  Serious: Yes (Hospitalization)
  Sender: FDA-Public Use
  Company Number: JP-ROCHE-435022

PATIENT
  Age: 20 Year
  Sex: Male
  Weight: 68 kg

DRUGS (5)
  1. TAMIFLU [Suspect]
     Route: 048
     Dates: start: 20060121, end: 20060121
  2. TAMIFLU [Suspect]
     Route: 048
     Dates: start: 20060122, end: 20060125
  3. TAMIFLU [Suspect]
     Route: 048
     Dates: start: 20060126, end: 20060126
  4. ANTITUSSIVE NOS [Concomitant]
     Dosage: REPORTED AS: ANTITUSSIVES AND EXPECTORANTS.
  5. UNSPECIFIED DRUG [Concomitant]
     Dosage: REPORTED AS: AGENTS FOR OTIC AND NASAL USE.

REACTIONS (6)
  - AGGRESSION [None]
  - DIZZINESS [None]
  - HEADACHE [None]
  - MANIA [None]
  - PAIN IN EXTREMITY [None]
  - RESTLESSNESS [None]
